FAERS Safety Report 9504413 (Version 7)
Quarter: 2016Q3

REPORT INFORMATION
  Report Type: Report from Study
  Country: US (occurrence: US)
  Receive Date: 20130906
  Receipt Date: 20160824
  Transmission Date: 20161109
  Serious: Yes (Hospitalization, Other)
  Sender: FDA-Public Use
  Company Number: US-BRISTOL-MYERS SQUIBB COMPANY-19234541

PATIENT
  Age: 74 Year
  Sex: Female
  Weight: 62.9 kg

DRUGS (1)
  1. IPILIMUMAB [Suspect]
     Active Substance: IPILIMUMAB
     Indication: MALIGNANT MELANOMA
     Dosage: LAST DOSE : 22JUL13  664MG
     Route: 042
     Dates: start: 20130204

REACTIONS (8)
  - Cardiomyopathy [Unknown]
  - Myocarditis [Not Recovered/Not Resolved]
  - Diarrhoea [Unknown]
  - Atrial fibrillation [Not Recovered/Not Resolved]
  - Pleural effusion [Not Recovered/Not Resolved]
  - Hypoxia [Not Recovered/Not Resolved]
  - Left ventricular dysfunction [Not Recovered/Not Resolved]
  - Embolism [Not Recovered/Not Resolved]

NARRATIVE: CASE EVENT DATE: 20130816
